FAERS Safety Report 22531719 (Version 1)
Quarter: 2023Q2

REPORT INFORMATION
  Report Type: Spontaneous
  Country: US (occurrence: US)
  Receive Date: 20230607
  Receipt Date: 20230607
  Transmission Date: 20230722
  Serious: Yes (Other)
  Sender: FDA-Public Use
  Company Number: US-CMP PHARMA-2023CMP00019

PATIENT
  Sex: Male

DRUGS (2)
  1. SPIRONOLACTONE [Suspect]
     Active Substance: SPIRONOLACTONE
     Route: 064
  2. DUTASTERIDE [Suspect]
     Active Substance: DUTASTERIDE
     Route: 064

REACTIONS (3)
  - Genitalia external ambiguous [Recovered/Resolved]
  - 5-alpha-reductase deficiency [Recovered/Resolved]
  - Teratogenicity [Recovered/Resolved]
